FAERS Safety Report 4414644-4 (Version None)
Quarter: 2004Q3

REPORT INFORMATION
  Report Type: 
  Country: None (occurrence: None)
  Receive Date: 20040729
  Receipt Date: 20040721
  Transmission Date: 20050211
  Serious: Yes (Other)
  Sender: FDA-Public Use
  Company Number: FR-JNJFOC-20040706065

PATIENT
  Age: 28 Year
  Sex: Female

DRUGS (3)
  1. RISPERDAL [Suspect]
     Dosage: SEE IMAGE
     Route: 048
     Dates: end: 20040301
  2. RISPERDAL [Suspect]
     Dosage: SEE IMAGE
     Route: 048
     Dates: start: 20031201
  3. RISPERDAL CONSTA [Suspect]
     Dosage: 37.5 MG, 1 IN 14 DAY, INTRA-MUSCULAR
     Route: 030
     Dates: start: 20040301

REACTIONS (4)
  - ANTINUCLEAR ANTIBODY POSITIVE [None]
  - CARDIOLIPIN ANTIBODY POSITIVE [None]
  - NEUTROPENIA [None]
  - THROMBOCYTOPENIA [None]
